FAERS Safety Report 7726017-7 (Version None)
Quarter: 2011Q3

REPORT INFORMATION
  Report Type: 
  Country: None (occurrence: None)
  Receive Date: 20110902
  Receipt Date: 20110829
  Transmission Date: 20111222
  Serious: Yes (Hospitalization)
  Sender: FDA-Public Use
  Company Number: FR-ROCHE-799460

PATIENT
  Age: 64 Year
  Sex: Male

DRUGS (15)
  1. CLONAZEPAM [Suspect]
     Route: 042
     Dates: end: 20110401
  2. PHENOBARBITAL TAB [Concomitant]
     Dosage: DECREASE OF DOSAGE ON 04 APRIL 2011
  3. FERROUS SULFATE TAB [Concomitant]
  4. VOGALENE [Concomitant]
  5. CLOZAPINE [Concomitant]
     Dates: end: 20110401
  6. SODIUM OXYBATE [Concomitant]
     Dosage: REPORTED AS XYREP.
  7. ACETAMINOPHEN [Concomitant]
  8. FORLAX [Concomitant]
  9. VALPROIC ACID [Concomitant]
  10. CLONAZEPAM [Suspect]
     Dosage: 1 MG/ML INJECTABLE SOLUTION
     Route: 042
     Dates: start: 20110502, end: 20110505
  11. CLONAZEPAM [Suspect]
     Route: 042
     Dates: start: 20110511
  12. GAVISCON [Concomitant]
  13. TRIMEPRAZINE TARTRATE [Concomitant]
  14. TERCIAN [Concomitant]
  15. OMEPRAZOLE [Concomitant]

REACTIONS (1)
  - HYPOTHERMIA [None]
